FAERS Safety Report 8966267 (Version 5)
Quarter: 2013Q1

REPORT INFORMATION
  Report Type: Report from Study
  Country: FR (occurrence: FR)
  Receive Date: 20121217
  Receipt Date: 20130125
  Transmission Date: 20140127
  Serious: Yes (Hospitalization)
  Sender: FDA-Public Use
  Company Number: FR-AMGEN-FRACT2012079442

PATIENT
  Age: 65 Year
  Sex: Female
  Weight: 55 kg

DRUGS (7)
  1. PANITUMUMAB [Suspect]
     Indication: TRANSITIONAL CELL CARCINOMA
     Dosage: 300 MG, UNK
     Route: 042
     Dates: start: 20121107, end: 20121109
  2. METHOTREXATE [Concomitant]
     Indication: TRANSITIONAL CELL CARCINOMA
     Dosage: 46 MG, UNK
     Route: 042
     Dates: start: 20120926
  3. VELBE [Concomitant]
     Indication: TRANSITIONAL CELL CARCINOMA
     Dosage: 4.6 MG, UNK
     Route: 042
     Dates: start: 20121107, end: 20121109
  4. ADRIAMYCIN [Concomitant]
     Indication: TRANSITIONAL CELL CARCINOMA
     Dosage: 46 MG, UNK
     Route: 042
     Dates: start: 20121107, end: 20121109
  5. CISPLATIN [Concomitant]
     Indication: TRANSITIONAL CELL CARCINOMA
     Dosage: 110 MG, UNK
     Route: 042
     Dates: start: 20121106, end: 20121109
  6. LESCOL [Concomitant]
     Dosage: UNK
  7. ANTIINFECTIVES AND ANTISEPTICS FOR LOCAL ORAL [Concomitant]

REACTIONS (1)
  - Purpura [Unknown]
